FAERS Safety Report 5462914-3 (Version None)
Quarter: 2007Q3

REPORT INFORMATION
  Report Type: 
  Country: None (occurrence: None)
  Receive Date: 20070920
  Receipt Date: 20070621
  Transmission Date: 20080115
  Serious: No
  Sender: FDA-Public Use
  Company Number: US-BAUSCH-2007BL002064

PATIENT
  Age: 82 Year
  Sex: Female

DRUGS (3)
  1. ALAWAY [Suspect]
     Indication: HYPERSENSITIVITY
     Route: 047
     Dates: start: 20070614, end: 20070617
  2. COUMADIN [Concomitant]
  3. TOPRAL [Concomitant]

REACTIONS (1)
  - EYELID OEDEMA [None]
